FAERS Safety Report 7225357-8 (Version None)
Quarter: 2011Q1

REPORT INFORMATION
  Report Type: 
  Country: None (occurrence: None)
  Receive Date: 20110104
  Receipt Date: 20101221
  Transmission Date: 20110831
  Serious: Yes (Other)
  Sender: FDA-Public Use
  Company Number: 024214

PATIENT
  Sex: Female

DRUGS (4)
  1. MTX /00113801/ [Concomitant]
  2. CIMZIA [Suspect]
     Indication: RHEUMATOID ARTHRITIS
     Dosage: (200 MG, ONCE IN WEEK 0 SUBCUTANEOUS) (400 MG, 200 MG TWICE IN WEEK 2 SUBCUTANEOUS) (200 MG, 200 MG
     Route: 058
     Dates: start: 20100901
  3. CIMZIA [Suspect]
     Indication: RHEUMATOID ARTHRITIS
     Dosage: (200 MG, ONCE IN WEEK 0 SUBCUTANEOUS) (400 MG, 200 MG TWICE IN WEEK 2 SUBCUTANEOUS) (200 MG, 200 MG
     Route: 058
     Dates: start: 20100901
  4. CIMZIA [Suspect]
     Indication: RHEUMATOID ARTHRITIS
     Dosage: (200 MG, ONCE IN WEEK 0 SUBCUTANEOUS) (400 MG, 200 MG TWICE IN WEEK 2 SUBCUTANEOUS) (200 MG, 200 MG
     Route: 058
     Dates: start: 20100901

REACTIONS (4)
  - DRUG ERUPTION [None]
  - SKIN TEST POSITIVE [None]
  - HELICOBACTER INFECTION [None]
  - DRUG INTOLERANCE [None]
